FAERS Safety Report 4731413-6 (Version None)
Quarter: 2005Q3

REPORT INFORMATION
  Report Type: 
  Country: None (occurrence: None)
  Receive Date: 20050802
  Receipt Date: 20050725
  Transmission Date: 20060218
  Serious: Yes (Hospitalization)
  Sender: FDA-Public Use
  Company Number: FR-SANOFI-SYNTHELABO-A02200501981

PATIENT
  Sex: Male

DRUGS (1)
  1. FASTURTEC [Suspect]
     Indication: PREMEDICATION
     Route: 042
     Dates: start: 20050517, end: 20050517

REACTIONS (6)
  - BRADYCARDIA [None]
  - HYPOTENSION [None]
  - LOSS OF CONSCIOUSNESS [None]
  - MALAISE [None]
  - NAUSEA [None]
  - VOMITING [None]
